FAERS Safety Report 6260357-6 (Version None)
Quarter: 2009Q3

REPORT INFORMATION
  Report Type: 
  Country: None (occurrence: None)
  Receive Date: 20090708
  Receipt Date: 20090629
  Transmission Date: 20100115
  Serious: Yes (Hospitalization)
  Sender: FDA-Public Use
  Company Number: FI-ASTRAZENECA-2009SE03674

PATIENT
  Sex: Male

DRUGS (2)
  1. CRESTOR [Suspect]
     Route: 048
  2. CRESTOR [Suspect]
     Route: 048
     Dates: end: 20080824

REACTIONS (4)
  - ARTHRALGIA [None]
  - MUSCLE ATROPHY [None]
  - MUSCLE SPASMS [None]
  - RECTAL CANCER [None]
